FAERS Safety Report 17488246 (Version 1)
Quarter: 2020Q1

REPORT INFORMATION
  Report Type: Spontaneous
  Country: GB (occurrence: GB)
  Receive Date: 20200303
  Receipt Date: 20200303
  Transmission Date: 20200409
  Serious: Yes (Life-Threatening)
  Sender: FDA-Public Use
  Company Number: GB-PFIZER INC-2020092401

PATIENT
  Age: 60 Year
  Sex: Female
  Weight: 94.4 kg

DRUGS (2)
  1. CARBOPLATIN. [Suspect]
     Active Substance: CARBOPLATIN
     Indication: NON-SMALL CELL LUNG CANCER
     Dosage: 400 MG, UNK
     Route: 042
     Dates: start: 20200120, end: 20200120
  2. VINORELBINE [Suspect]
     Active Substance: VINORELBINE TARTRATE
     Indication: NON-SMALL CELL LUNG CANCER
     Dosage: 90 MG, UNK
     Route: 048
     Dates: start: 20200120, end: 20200120

REACTIONS (7)
  - Restlessness [Unknown]
  - Product use in unapproved indication [Unknown]
  - Hyponatraemia [Unknown]
  - Disturbance in attention [Unknown]
  - Off label use [Unknown]
  - Nausea [Unknown]
  - Confusional state [Unknown]

NARRATIVE: CASE EVENT DATE: 20200127
